FAERS Safety Report 13339709 (Version 2)
Quarter: 2017Q2

REPORT INFORMATION
  Report Type: Report from Study
  Country: None (occurrence: CA)
  Receive Date: 20170315
  Receipt Date: 20170413
  Transmission Date: 20170830
  Serious: Yes (Hospitalization)
  Sender: FDA-Public Use
  Company Number: CA-ABBVIE-17P-028-1904127-00

PATIENT
  Age: 72 Year
  Sex: Male
  Weight: 113 kg

DRUGS (4)
  1. HOLKIRA PAK [Suspect]
     Active Substance: DASABUVIR\OMBITASVIR\PARITAPREVIR\RITONAVIR
     Dosage: 2 OMBITASVIR/PARITAPREVIR/RITONAVIR 12.5/75/50MG TAB QD AND 1 DASABUVIR 250MG TAB BID
     Route: 048
     Dates: start: 20170314
  2. MODERIBA [Suspect]
     Active Substance: RIBAVIRIN
     Route: 048
     Dates: start: 20170314
  3. MODERIBA [Suspect]
     Active Substance: RIBAVIRIN
     Indication: HEPATITIS C
     Route: 048
     Dates: start: 20170131, end: 20170228
  4. HOLKIRA PAK [Suspect]
     Active Substance: DASABUVIR\OMBITASVIR\PARITAPREVIR\RITONAVIR
     Indication: HEPATITIS C
     Dosage: 2 OMBITASVIR/PARITAPREVIR/RITONAVIR 12.5/75/50MG TAB QD AND 1 DASABUVIR 250MG TAB BID
     Route: 048
     Dates: start: 20170131, end: 20170228

REACTIONS (3)
  - Swelling [Recovered/Resolved]
  - Chest pain [Recovered/Resolved]
  - Alcohol use [Recovered/Resolved]

NARRATIVE: CASE EVENT DATE: 20170228
